FAERS Safety Report 16987698 (Version 1)
Quarter: 2019Q4

REPORT INFORMATION
  Report Type: Spontaneous
  Country: US (occurrence: US)
  Receive Date: 20191104
  Receipt Date: 20191104
  Transmission Date: 20200122
  Serious: No
  Sender: FDA-Public Use
  Company Number: US-BIOGEN-2019BI00766771

PATIENT
  Sex: Female
  Weight: 92.16 kg

DRUGS (1)
  1. TECFIDERA [Suspect]
     Active Substance: DIMETHYL FUMARATE
     Indication: MULTIPLE SCLEROSIS
     Route: 065
     Dates: start: 20190716

REACTIONS (2)
  - Urinary incontinence [Not Recovered/Not Resolved]
  - Flushing [Not Recovered/Not Resolved]
